FAERS Safety Report 23742469 (Version 3)
Quarter: 2024Q4

REPORT INFORMATION
  Report Type: Spontaneous
  Country: BB (occurrence: BB)
  Receive Date: 20240415
  Receipt Date: 20241025
  Transmission Date: 20250115
  Serious: Yes (Other)
  Sender: NOVARTIS
  Company Number: BB-002147023-NVSC2024BB078451

PATIENT
  Age: 53 Year
  Sex: Male

DRUGS (1)
  1. DIOVAN [Suspect]
     Active Substance: VALSARTAN
     Indication: Product used for unknown indication
     Dosage: 160 MG, QD
     Route: 065
     Dates: start: 2021

REACTIONS (2)
  - Erectile dysfunction [Unknown]
  - Dizziness [Unknown]
